FAERS Safety Report 17560088 (Version 2)
Quarter: 2022Q1

REPORT INFORMATION
  Report Type: Spontaneous
  Country: US (occurrence: US)
  Receive Date: 20200319
  Receipt Date: 20220222
  Transmission Date: 20220424
  Serious: No
  Sender: FDA-Public Use
  Company Number: US-PFIZER INC-2020118319

PATIENT
  Age: 79 Year
  Sex: Female

DRUGS (2)
  1. NORVASC [Suspect]
     Active Substance: AMLODIPINE BESYLATE
     Dosage: UNK
  2. CODEINE [Suspect]
     Active Substance: CODEINE
     Dosage: UNK

REACTIONS (1)
  - Drug hypersensitivity [Unknown]
